FAERS Safety Report 4644711-1 (Version None)
Quarter: 2005Q2

REPORT INFORMATION
  Report Type: 
  Country: None (occurrence: None)
  Receive Date: 20050426
  Receipt Date: 20050419
  Transmission Date: 20051028
  Serious: Yes (Hospitalization)
  Sender: FDA-Public Use
  Company Number: US-JNJFOC-20050404537

PATIENT
  Sex: Male
  Weight: 22.68 kg

DRUGS (2)
  1. CONCERTA [Suspect]
     Route: 049
  2. CONCERTA [Suspect]
     Route: 049

REACTIONS (7)
  - COGNITIVE DISORDER [None]
  - DELUSION [None]
  - EYE PAIN [None]
  - EYE PRURITUS [None]
  - HALLUCINATION [None]
  - LOSS OF CONSCIOUSNESS [None]
  - VISION BLURRED [None]
